FAERS Safety Report 15705782 (Version 5)
Quarter: 2019Q2

REPORT INFORMATION
  Report Type: Report from Study
  Country: US (occurrence: US)
  Receive Date: 20181210
  Receipt Date: 20190607
  Transmission Date: 20190711
  Serious: Yes (Other)
  Sender: FDA-Public Use
  Company Number: US-JNJFOC-20180516084

PATIENT
  Age: 55 Year
  Sex: Male

DRUGS (7)
  1. IMBRUVICA [Suspect]
     Active Substance: IBRUTINIB
     Indication: CHRONIC LYMPHOCYTIC LEUKAEMIA
     Route: 048
     Dates: start: 20180613
  2. IMBRUVICA [Suspect]
     Active Substance: IBRUTINIB
     Indication: CHRONIC LYMPHOCYTIC LEUKAEMIA
     Route: 048
     Dates: start: 20160901
  3. IMBRUVICA [Suspect]
     Active Substance: IBRUTINIB
     Indication: CHRONIC LYMPHOCYTIC LEUKAEMIA
     Route: 048
     Dates: start: 20180607
  4. IMBRUVICA [Suspect]
     Active Substance: IBRUTINIB
     Indication: CHRONIC LYMPHOCYTIC LEUKAEMIA
     Route: 048
     Dates: start: 20181101, end: 20181117
  5. IMBRUVICA [Suspect]
     Active Substance: IBRUTINIB
     Indication: CHRONIC LYMPHOCYTIC LEUKAEMIA
     Route: 048
     Dates: start: 20181124
  6. TETRYZOLINE HYDROCHLORIDE [Concomitant]
     Active Substance: TETRAHYDROZOLINE HYDROCHLORIDE
  7. IMBRUVICA [Suspect]
     Active Substance: IBRUTINIB
     Indication: CHRONIC LYMPHOCYTIC LEUKAEMIA
     Route: 048
     Dates: start: 20161128, end: 20180713

REACTIONS (33)
  - Product dose omission [Unknown]
  - Flatulence [Not Recovered/Not Resolved]
  - Rash pustular [Not Recovered/Not Resolved]
  - Sinusitis [Recovered/Resolved]
  - Blood pressure increased [Unknown]
  - Pain [Recovering/Resolving]
  - Nail cuticle fissure [Not Recovered/Not Resolved]
  - Impaired healing [Not Recovered/Not Resolved]
  - Nausea [Recovering/Resolving]
  - Insomnia [Unknown]
  - Bone pain [Unknown]
  - Bronchitis [Recovered/Resolved]
  - Diarrhoea [Recovering/Resolving]
  - Eyelid folliculitis [Recovered/Resolved]
  - Influenza like illness [Recovered/Resolved]
  - Blepharitis [Not Recovered/Not Resolved]
  - Skin papilloma [Recovering/Resolving]
  - Fatigue [Unknown]
  - Myalgia [Unknown]
  - Paronychia [Not Recovered/Not Resolved]
  - Body temperature increased [Recovering/Resolving]
  - Depressed mood [Unknown]
  - Blood blister [Unknown]
  - White blood cell count decreased [Not Recovered/Not Resolved]
  - Epistaxis [Unknown]
  - Skin disorder [Not Recovered/Not Resolved]
  - Nail growth abnormal [Not Recovered/Not Resolved]
  - Blister [Recovering/Resolving]
  - Onychoclasis [Not Recovered/Not Resolved]
  - Nasopharyngitis [Recovered/Resolved]
  - Gastrooesophageal reflux disease [Not Recovered/Not Resolved]
  - Nail ridging [Not Recovered/Not Resolved]
  - Malaise [Not Recovered/Not Resolved]

NARRATIVE: CASE EVENT DATE: 2016
